FAERS Safety Report 4356495-5 (Version None)
Quarter: 2004Q2

REPORT INFORMATION
  Report Type: 
  Country: None (occurrence: None)
  Receive Date: 20040507
  Receipt Date: 20040422
  Transmission Date: 20050107
  Serious: Yes (Life-Threatening)
  Sender: FDA-Public Use
  Company Number: BCM-000786

PATIENT
  Age: 63 Year
  Sex: Male

DRUGS (3)
  1. IOPAMIDOL [Suspect]
     Indication: COMPUTERISED TOMOGRAM
     Dosage: 100 ML IV/A FEW MINUTES
     Route: 042
     Dates: start: 20040225, end: 20040225
  2. IOPAMIDOL [Suspect]
     Indication: PYREXIA
     Dosage: 100 ML IV/A FEW MINUTES
     Route: 042
     Dates: start: 20040225, end: 20040225
  3. BETA-BLOCKING [Concomitant]

REACTIONS (10)
  - BRAIN HYPOXIA [None]
  - BRONCHOSPASM [None]
  - CHILLS [None]
  - CONTRAST MEDIA REACTION [None]
  - DRUG INEFFECTIVE [None]
  - LOSS OF CONSCIOUSNESS [None]
  - MUSCLE CONTRACTIONS INVOLUNTARY [None]
  - PROCEDURAL COMPLICATION [None]
  - RESPIRATORY ACIDOSIS [None]
  - RESPIRATORY FAILURE [None]
